FAERS Safety Report 19510703 (Version 1)
Quarter: 2021Q3

REPORT INFORMATION
  Report Type: Spontaneous
  Country: US (occurrence: US)
  Receive Date: 20210708
  Receipt Date: 20210708
  Transmission Date: 20211014
  Serious: Yes (Death)
  Sender: FDA-Public Use
  Company Number: None

PATIENT
  Age: 73 Year
  Sex: Female
  Weight: 74.93 kg

DRUGS (3)
  1. FERROUS SULFATE. [Concomitant]
     Active Substance: FERROUS SULFATE
  2. MULTIVITAMIN [Concomitant]
     Active Substance: VITAMINS
  3. CAPECITABINE 500MG [Suspect]
     Active Substance: CAPECITABINE
     Indication: RECTAL CANCER
     Dosage: 1500MG/2000MG QAM / QPM PO
     Route: 048
     Dates: start: 20210325

REACTIONS (1)
  - Death [None]

NARRATIVE: CASE EVENT DATE: 20210609
